FAERS Safety Report 10707995 (Version 9)
Quarter: 2015Q2

REPORT INFORMATION
  Report Type: Spontaneous
  Country: IL (occurrence: IL)
  Receive Date: 20150113
  Receipt Date: 20150504
  Transmission Date: 20150821
  Serious: Yes (Hospitalization)
  Sender: FDA-Public Use
  Company Number: IL-PFIZER INC-2014325716

PATIENT
  Age: 66 Year
  Sex: Male

DRUGS (6)
  1. SUTENT [Suspect]
     Active Substance: SUNITINIB MALATE
     Indication: RENAL CELL CARCINOMA
     Dosage: 50 MG, 1X/DAY
     Route: 048
     Dates: start: 20141102
  2. SIMVASTATIN. [Concomitant]
     Active Substance: SIMVASTATIN
     Dosage: UNK
  3. BISOPROLOL FUMARATE. [Concomitant]
     Active Substance: BISOPROLOL FUMARATE
     Dosage: UNK
  4. SUTENT [Suspect]
     Active Substance: SUNITINIB MALATE
     Dosage: 37.5 MG, 1X/DAY
     Dates: start: 201503, end: 20150420
  5. ASPIRIN. [Concomitant]
     Active Substance: ASPIRIN
     Dosage: UNK
  6. CILAZAPRIL [Concomitant]
     Active Substance: CILAZAPRIL ANHYDROUS
     Dosage: UNK

REACTIONS (25)
  - Nausea [Recovered/Resolved]
  - Blood thyroid stimulating hormone increased [Unknown]
  - Dry skin [Unknown]
  - Asthenia [Not Recovered/Not Resolved]
  - Diarrhoea [Recovered/Resolved]
  - Dysphonia [Not Recovered/Not Resolved]
  - Fluid intake reduced [Unknown]
  - Decreased appetite [Not Recovered/Not Resolved]
  - Nasopharyngitis [Unknown]
  - Weight decreased [Unknown]
  - Malaise [Recovering/Resolving]
  - Skin exfoliation [Unknown]
  - Vomiting [Recovered/Resolved]
  - Gingival pain [Unknown]
  - Pain of skin [Unknown]
  - Disease progression [Unknown]
  - Chest pain [Unknown]
  - Epistaxis [Recovered/Resolved]
  - Dyspepsia [Recovering/Resolving]
  - Skin discolouration [Unknown]
  - Rash macular [Unknown]
  - Dysgeusia [Not Recovered/Not Resolved]
  - Renal cell carcinoma [Unknown]
  - Oral pain [Not Recovered/Not Resolved]
  - Gingival bleeding [Recovered/Resolved]

NARRATIVE: CASE EVENT DATE: 2014
